FAERS Safety Report 23367568 (Version 2)
Quarter: 2024Q1

REPORT INFORMATION
  Report Type: Spontaneous
  Country: US (occurrence: US)
  Receive Date: 20240104
  Receipt Date: 20240118
  Transmission Date: 20240410
  Serious: No
  Sender: FDA-Public Use
  Company Number: US-PFIZER INC-PV202300208300

PATIENT
  Age: 74 Year
  Sex: Female
  Weight: 90.6 kg

DRUGS (3)
  1. IBRANCE [Suspect]
     Active Substance: PALBOCICLIB
     Indication: Breast cancer female
     Dosage: UNK, CYCLIC
     Dates: start: 20201215
  2. IBRANCE [Suspect]
     Active Substance: PALBOCICLIB
     Dosage: TAKE 1 TABLET (125 MG TOTAL) BY MOUTH DAILY FOR 21 DAYS FOLLOWED BY 7 DAYS OFF WITH FOOD
     Route: 048
     Dates: start: 20231130, end: 20231221
  3. FULVESTRANT [Concomitant]
     Active Substance: FULVESTRANT
     Indication: Breast cancer female
     Dosage: UNK
     Dates: start: 20201215

REACTIONS (1)
  - Neoplasm progression [Unknown]
